FAERS Safety Report 15597500 (Version 2)
Quarter: 2019Q3

REPORT INFORMATION
  Report Type: Report from Study
  Country: JP (occurrence: JP)
  Receive Date: 20181108
  Receipt Date: 20190920
  Transmission Date: 20191004
  Serious: Yes (Hospitalization, Other)
  Sender: FDA-Public Use
  Company Number: JP-CLINIGEN GROUP PLC/ CLINIGEN HEALTHCARE LTD-JP-CLGN-18-00225

PATIENT
  Age: 1 Year
  Sex: Female
  Weight: 7.5 kg

DRUGS (46)
  1. PINORUBIN [Suspect]
     Active Substance: PIRARUBICIN
     Dates: start: 20180618, end: 20180619
  2. PINORUBIN [Suspect]
     Active Substance: PIRARUBICIN
     Dates: start: 20180602, end: 20180603
  3. ONCOVIN [Suspect]
     Active Substance: VINCRISTINE SULFATE
     Indication: PRODUCT USED FOR UNKNOWN INDICATION
     Route: 042
     Dates: start: 20180507, end: 20180507
  4. CYLOCIDE [Suspect]
     Active Substance: CYTARABINE
     Indication: PRODUCT USED FOR UNKNOWN INDICATION
     Dates: start: 20180507, end: 20180507
  5. NASEA [Concomitant]
     Active Substance: RAMOSETRON HYDROCHLORIDE
     Indication: PRODUCT USED FOR UNKNOWN INDICATION
     Route: 042
     Dates: start: 20180507, end: 20180509
  6. HISHIPHAGEN-C [Concomitant]
     Indication: PRODUCT USED FOR UNKNOWN INDICATION
     Route: 042
     Dates: start: 20180622, end: 20180624
  7. FLUCONAZOLE. [Concomitant]
     Active Substance: FLUCONAZOLE
     Indication: PRODUCT USED FOR UNKNOWN INDICATION
     Route: 048
     Dates: start: 20180618
  8. METHOTREXATE. [Concomitant]
     Active Substance: METHOTREXATE
     Indication: PRODUCT USED FOR UNKNOWN INDICATION
     Dates: start: 20180507, end: 20180507
  9. SOLU-CORTEF [Concomitant]
     Active Substance: HYDROCORTISONE SODIUM SUCCINATE
     Indication: PRODUCT USED FOR UNKNOWN INDICATION
     Dates: start: 20180507, end: 20180507
  10. FUNGUARD [Concomitant]
     Active Substance: MICAFUNGIN SODIUM
     Route: 041
     Dates: start: 20180808, end: 20180808
  11. SAVENE [Suspect]
     Active Substance: DEXRAZOXANE
     Indication: CHEMOTHERAPY CARDIOTOXICITY ATTENUATION
     Route: 041
     Dates: start: 20180507, end: 20180508
  12. ENDOXAN [Suspect]
     Active Substance: CYCLOPHOSPHAMIDE
     Dates: start: 20180618, end: 20180620
  13. CYLOCIDE [Suspect]
     Active Substance: CYTARABINE
     Dates: start: 20180802, end: 20180802
  14. NASEA [Concomitant]
     Active Substance: RAMOSETRON HYDROCHLORIDE
     Route: 042
     Dates: start: 20180802, end: 20180804
  15. HISHIPHAGEN-C [Concomitant]
     Route: 042
     Dates: start: 20180718, end: 20180718
  16. ENDOXAN [Suspect]
     Active Substance: CYCLOPHOSPHAMIDE
     Dates: start: 20180528, end: 20180530
  17. ONCOVIN [Suspect]
     Active Substance: VINCRISTINE SULFATE
     Route: 042
     Dates: start: 20180528, end: 20180528
  18. ONCOVIN [Suspect]
     Active Substance: VINCRISTINE SULFATE
     Route: 042
     Dates: start: 20180713, end: 20180713
  19. ONCOVIN [Suspect]
     Active Substance: VINCRISTINE SULFATE
     Route: 042
     Dates: start: 20180802, end: 20180802
  20. ISOTONIC SODIUM CHLORIDE SOLUTION [Concomitant]
     Active Substance: SODIUM CHLORIDE
     Indication: MEDICATION DILUTION
     Route: 041
     Dates: start: 20180507, end: 20180508
  21. ISOTONIC SODIUM CHLORIDE SOLUTION [Concomitant]
     Active Substance: SODIUM CHLORIDE
     Route: 041
     Dates: start: 20180802, end: 20180803
  22. PROEMEND [Concomitant]
     Active Substance: FOSAPREPITANT
     Route: 041
     Dates: start: 20180618, end: 20180618
  23. HISHIPHAGEN-C [Concomitant]
     Route: 042
     Dates: start: 20180806, end: 20180809
  24. BAKTAR [Concomitant]
     Active Substance: SULFAMETHOXAZOLE\TRIMETHOPRIM
     Indication: PRODUCT USED FOR UNKNOWN INDICATION
     Route: 048
     Dates: start: 20180618
  25. ONCOVIN [Suspect]
     Active Substance: VINCRISTINE SULFATE
     Route: 042
     Dates: start: 20180601, end: 20180601
  26. ONCOVIN [Suspect]
     Active Substance: VINCRISTINE SULFATE
     Route: 042
     Dates: start: 20180709, end: 20180709
  27. CYLOCIDE [Suspect]
     Active Substance: CYTARABINE
     Dates: start: 20180618, end: 20180618
  28. COSMEGEN [Suspect]
     Active Substance: DACTINOMYCIN
     Route: 042
     Dates: start: 20180709, end: 20180713
  29. SOLU-CORTEF [Concomitant]
     Active Substance: HYDROCORTISONE SODIUM SUCCINATE
     Dates: start: 20180802, end: 20180802
  30. SAVENE [Suspect]
     Active Substance: DEXRAZOXANE
     Route: 041
     Dates: start: 20180618, end: 20180619
  31. SAVENE [Suspect]
     Active Substance: DEXRAZOXANE
     Route: 041
     Dates: start: 20180802, end: 20180803
  32. PINORUBIN [Suspect]
     Active Substance: PIRARUBICIN
     Indication: PRODUCT USED FOR UNKNOWN INDICATION
     Dates: start: 20180507, end: 20180508
  33. SOLU-CORTEF [Concomitant]
     Active Substance: HYDROCORTISONE SODIUM SUCCINATE
     Dates: start: 20180618, end: 20180618
  34. ENDOXAN [Suspect]
     Active Substance: CYCLOPHOSPHAMIDE
     Dates: start: 20180709, end: 20180711
  35. ONCOVIN [Suspect]
     Active Substance: VINCRISTINE SULFATE
     Route: 042
     Dates: start: 20180618, end: 20180618
  36. ISOTONIC SODIUM CHLORIDE SOLUTION [Concomitant]
     Active Substance: SODIUM CHLORIDE
     Route: 041
     Dates: start: 20180618, end: 20180619
  37. METHOTREXATE. [Concomitant]
     Active Substance: METHOTREXATE
     Dates: start: 20180618, end: 20180618
  38. PROEMEND [Concomitant]
     Active Substance: FOSAPREPITANT
     Indication: PRODUCT USED FOR UNKNOWN INDICATION
     Route: 041
     Dates: start: 20180528, end: 20180528
  39. PROEMEND [Concomitant]
     Active Substance: FOSAPREPITANT
     Route: 041
     Dates: start: 20180802, end: 20180802
  40. ENDOXAN [Suspect]
     Active Substance: CYCLOPHOSPHAMIDE
     Indication: PRODUCT USED FOR UNKNOWN INDICATION
     Dates: start: 20180507, end: 20180509
  41. ENDOXAN [Suspect]
     Active Substance: CYCLOPHOSPHAMIDE
     Dates: start: 20180802, end: 20180804
  42. COSMEGEN [Suspect]
     Active Substance: DACTINOMYCIN
     Indication: PRODUCT USED FOR UNKNOWN INDICATION
     Route: 042
     Dates: start: 20180528, end: 20180601
  43. METHOTREXATE. [Concomitant]
     Active Substance: METHOTREXATE
     Dates: start: 20180802, end: 20180802
  44. NASEA [Concomitant]
     Active Substance: RAMOSETRON HYDROCHLORIDE
     Route: 042
     Dates: start: 20180528, end: 20180601
  45. NASEA [Concomitant]
     Active Substance: RAMOSETRON HYDROCHLORIDE
     Route: 042
     Dates: start: 20180618, end: 20180620
  46. FUNGUARD [Concomitant]
     Active Substance: MICAFUNGIN SODIUM
     Indication: PRODUCT USED FOR UNKNOWN INDICATION
     Route: 041
     Dates: start: 20180805, end: 20180806

REACTIONS (3)
  - Bone marrow failure [Not Recovered/Not Resolved]
  - Off label use [Unknown]
  - Pyrexia [Recovered/Resolved]

NARRATIVE: CASE EVENT DATE: 20180507
